FAERS Safety Report 25371318 (Version 1)
Quarter: 2025Q2

REPORT INFORMATION
  Report Type: Spontaneous
  Country: US (occurrence: US)
  Receive Date: 20250529
  Receipt Date: 20250529
  Transmission Date: 20250717
  Serious: No
  Sender: ROCHE
  Company Number: US-ROCHE-10000295245

PATIENT
  Sex: Female

DRUGS (13)
  1. ACTEMRA [Suspect]
     Active Substance: TOCILIZUMAB
     Indication: Rheumatoid arthritis
     Dosage: (STRENGTH REPORTED AS: 162MG/0.9ML)
     Route: 058
  2. CALCIUM [Concomitant]
     Active Substance: CALCIUM
     Route: 042
  3. FENOFIBRATE [Concomitant]
     Active Substance: FENOFIBRATE
  4. FOSAMAX [Concomitant]
     Active Substance: ALENDRONATE SODIUM
  5. MELOXICAM [Concomitant]
     Active Substance: MELOXICAM
  6. MIRALAX POW [Concomitant]
  7. PANTOPRAZOLE [Concomitant]
     Active Substance: PANTOPRAZOLE
  8. TIZANIDINE [Concomitant]
     Active Substance: TIZANIDINE
  9. TYLENOL [Concomitant]
     Active Substance: ACETAMINOPHEN
  10. VASCEPA [Concomitant]
     Active Substance: ICOSAPENT ETHYL
  11. VITAMIN D [Concomitant]
     Active Substance: VITAMIN D NOS
  12. ZETIA [Concomitant]
     Active Substance: EZETIMIBE
  13. ZINC [Concomitant]
     Active Substance: ZINC

REACTIONS (1)
  - Sinusitis [Recovered/Resolved]
